FAERS Safety Report 14347159 (Version 1)
Quarter: 2018Q1

REPORT INFORMATION
  Report Type: Spontaneous
  Country: US (occurrence: US)
  Receive Date: 20180102
  Receipt Date: 20180102
  Transmission Date: 20180509
  Serious: Yes (Disabling)
  Sender: FDA-Public Use
  Company Number: None

PATIENT
  Age: 31 Year
  Sex: Female
  Weight: 58.5 kg

DRUGS (2)
  1. ZOLOFT [Suspect]
     Active Substance: SERTRALINE HYDROCHLORIDE
     Indication: IRRITABILITY
     Dosage: ?          QUANTITY:1 TABLET(S);?
     Route: 048
     Dates: start: 20170106, end: 20170106
  2. ZOLOFT [Suspect]
     Active Substance: SERTRALINE HYDROCHLORIDE
     Indication: INSOMNIA
     Dosage: ?          QUANTITY:1 TABLET(S);?
     Route: 048
     Dates: start: 20170106, end: 20170106

REACTIONS (12)
  - Panic attack [None]
  - Dizziness [None]
  - Muscle spasms [None]
  - Mood swings [None]
  - Anxiety [None]
  - Paraesthesia [None]
  - Muscular weakness [None]
  - Derealisation [None]
  - Paranoia [None]
  - Vision blurred [None]
  - Intrusive thoughts [None]
  - Emotional disorder [None]

NARRATIVE: CASE EVENT DATE: 20170106
